FAERS Safety Report 9135360 (Version 1)
Quarter: 2013Q1

REPORT INFORMATION
  Report Type: Spontaneous
  Country: US (occurrence: US)
  Receive Date: 20130304
  Receipt Date: 20130304
  Transmission Date: 20140127
  Serious: No
  Sender: FDA-Public Use
  Company Number: US-B.I. PHARMACEUTICALS,INC./RIDGEFIELD-2013-BI-05012BP

PATIENT
  Sex: Female
  Weight: 75 kg

DRUGS (5)
  1. PRADAXA [Suspect]
     Indication: ATRIAL FIBRILLATION
     Dosage: 75 MCG
     Route: 048
     Dates: start: 201203
  2. DILTIAZEM [Concomitant]
     Dosage: 240 MG
     Route: 048
  3. FUROSEMIDE [Concomitant]
     Dosage: 20 MG
     Route: 048
  4. RAMIPRIL [Concomitant]
     Indication: HYPERTENSION
  5. AMIODARONE [Concomitant]
     Dosage: 200 MG
     Route: 048

REACTIONS (1)
  - Hyperhidrosis [Not Recovered/Not Resolved]
